FAERS Safety Report 10089105 (Version 1)
Quarter: 2014Q2

REPORT INFORMATION
  Report Type: Spontaneous
  Country: GB (occurrence: GB)
  Receive Date: 20140421
  Receipt Date: 20140421
  Transmission Date: 20141212
  Serious: Yes (Life-Threatening, Hospitalization)
  Sender: FDA-Public Use
  Company Number: GB-BAYER-2014-054693

PATIENT
  Age: 63 Year
  Sex: Male

DRUGS (4)
  1. SORAFENIB (RAF KINASE INHIBITOR) [Suspect]
     Dosage: 400 MG
     Route: 048
     Dates: start: 201402, end: 20140225
  2. DARUNAVIR [Concomitant]
     Indication: HIV INFECTION
     Dosage: 800 MG, 1/1 DAUS
     Route: 048
  3. RITONAVIR [Concomitant]
     Indication: HIV INFECTION
     Dosage: 100 MG, 1/1 DAYS
     Route: 048
  4. TRUVADA [Concomitant]
     Indication: HIV INFECTION
     Dosage: 1 DF, 1/1 DAYS
     Route: 048

REACTIONS (1)
  - Myocardial infarction [Recovered/Resolved]
